FAERS Safety Report 9959106 (Version 1)
Quarter: 2014Q1

REPORT INFORMATION
  Report Type: Spontaneous
  Country: US (occurrence: None)
  Receive Date: 20140228
  Receipt Date: 20140228
  Transmission Date: 20141002
  Serious: Yes (Other)
  Sender: FDA-Public Use
  Company Number: None

PATIENT
  Age: 24 Year
  Sex: Female
  Weight: 47.63 kg

DRUGS (1)
  1. ROHTO COOL [Suspect]
     Indication: OCULAR HYPERAEMIA

REACTIONS (2)
  - Corneal disorder [None]
  - Optic nerve disorder [None]
